FAERS Safety Report 15704050 (Version 2)
Quarter: 2019Q2

REPORT INFORMATION
  Report Type: Spontaneous
  Country: US (occurrence: US)
  Receive Date: 20181210
  Receipt Date: 20190628
  Transmission Date: 20190711
  Serious: No
  Sender: FDA-Public Use
  Company Number: US-MYLANLABS-2018M1089537

PATIENT
  Sex: Female
  Weight: 86.17 kg

DRUGS (2)
  1. LIOTHYRONINE [Concomitant]
     Active Substance: LIOTHYRONINE
     Dosage: UNK
  2. ESTRADIOL TRANSDERMAL SYSTEM [Suspect]
     Active Substance: ESTRADIOL
     Indication: ADRENAL INSUFFICIENCY
     Dosage: UNK UNK, BIWEEKLY
     Route: 062

REACTIONS (5)
  - Dyspnoea [Unknown]
  - Off label use [Unknown]
  - Product adhesion issue [Unknown]
  - Palpitations [Unknown]
  - Wrong technique in product usage process [Unknown]
